FAERS Safety Report 5876971-3 (Version None)
Quarter: 2008Q3

REPORT INFORMATION
  Report Type: 
  Country: None (occurrence: None)
  Receive Date: 20080910
  Receipt Date: 20080829
  Transmission Date: 20090109
  Serious: Yes (Other)
  Sender: FDA-Public Use
  Company Number: PHHY2008JP19790

PATIENT
  Age: 81 Year
  Sex: Female

DRUGS (5)
  1. NEORAL [Suspect]
     Indication: PEMPHIGOID
     Dosage: 250 MG/DAY
     Route: 048
     Dates: start: 20080703, end: 20080727
  2. MINOCYCLINE HCL [Concomitant]
     Route: 048
  3. BETAMETHASONE [Concomitant]
     Route: 048
  4. GASTER D [Concomitant]
     Route: 048
  5. FOSAMAX [Concomitant]
     Dosage: 35 MG
     Route: 048

REACTIONS (1)
  - PANCYTOPENIA [None]
